FAERS Safety Report 9463006 (Version 1)
Quarter: 2013Q3

REPORT INFORMATION
  Report Type: Spontaneous
  Country: CA (occurrence: CA)
  Receive Date: 20130816
  Receipt Date: 20130816
  Transmission Date: 20140515
  Serious: Yes (Death, Other)
  Sender: FDA-Public Use
  Company Number: PHHY2013CA088363

PATIENT
  Sex: 0

DRUGS (2)
  1. METHOTREXATE [Suspect]
     Dosage: MATERINAL DOSE 50 MG/M2
     Route: 064
  2. MISOPROSTOL [Suspect]
     Dosage: MATERINAL DOSE: 800 UG
     Route: 064

REACTIONS (15)
  - Foetal growth restriction [Fatal]
  - Microcephaly [Fatal]
  - Hypertelorism of orbit [Fatal]
  - Ear malformation [Fatal]
  - Micrognathia [Fatal]
  - Limb deformity [Fatal]
  - Clinodactyly [Fatal]
  - Umbilical cord abnormality [Fatal]
  - Cleft uvula [Fatal]
  - Foot deformity [Fatal]
  - Rib deformity [Fatal]
  - Congenital absence of vertebra [Fatal]
  - Congenital large intestinal atresia [Fatal]
  - Pulmonary malformation [Fatal]
  - Foetal exposure during pregnancy [Unknown]
